FAERS Safety Report 21093651 (Version 1)
Quarter: 2022Q3

REPORT INFORMATION
  Report Type: Spontaneous
  Country: IT (occurrence: IT)
  Receive Date: 20220718
  Receipt Date: 20220718
  Transmission Date: 20221027
  Serious: Yes (Life-Threatening, Hospitalization)
  Sender: FDA-Public Use
  Company Number: IT-MYLANLABS-2022M1078042

PATIENT
  Sex: Male

DRUGS (12)
  1. BACLOFEN [Suspect]
     Active Substance: BACLOFEN
     Indication: Substance abuse
     Dosage: UNK UNK, QD
     Route: 065
  2. BACLOFEN [Suspect]
     Active Substance: BACLOFEN
     Indication: Suicide attempt
  3. DIAZEPAM [Suspect]
     Active Substance: DIAZEPAM
     Indication: Drug detoxification
     Dosage: UNK
     Route: 065
  4. PREGABALIN [Suspect]
     Active Substance: PREGABALIN
     Indication: Drug detoxification
     Dosage: UNK
     Route: 065
  5. 4-AMINO-3-PHENYLBUTYRIC ACID [Suspect]
     Active Substance: 4-AMINO-3-PHENYLBUTYRIC ACID
     Indication: Substance abuse
     Dosage: 1.6 GRAM, QD
     Route: 065
  6. 4-AMINO-3-PHENYLBUTYRIC ACID [Suspect]
     Active Substance: 4-AMINO-3-PHENYLBUTYRIC ACID
     Indication: Suicide attempt
  7. METHYLPHENIDATE [Suspect]
     Active Substance: METHYLPHENIDATE
     Indication: Substance abuse
     Dosage: UNK, QD
     Route: 065
  8. METHYLPHENIDATE [Suspect]
     Active Substance: METHYLPHENIDATE
     Indication: Suicide attempt
  9. BUPROPION [Suspect]
     Active Substance: BUPROPION
     Indication: Drug detoxification
     Dosage: UNK
     Route: 065
  10. CHLORDIAZEPOXIDE [Suspect]
     Active Substance: CHLORDIAZEPOXIDE
     Indication: Drug detoxification
     Dosage: UNK
     Route: 065
  11. AMITRIPTYLINE [Concomitant]
     Active Substance: AMITRIPTYLINE
     Indication: Evidence based treatment
     Dosage: UNK
     Route: 065
  12. OLANZAPINE [Concomitant]
     Active Substance: OLANZAPINE
     Indication: Evidence based treatment
     Dosage: UNK
     Route: 065

REACTIONS (11)
  - Toxicity to various agents [Unknown]
  - Substance dependence [Unknown]
  - Substance abuse [Unknown]
  - Coma [Unknown]
  - Suicide attempt [Unknown]
  - Drug ineffective [Unknown]
  - Urinary retention [Unknown]
  - Confusional state [Unknown]
  - Seizure [Unknown]
  - Withdrawal syndrome [Unknown]
  - Depression [Unknown]
